FAERS Safety Report 4677394-5 (Version None)
Quarter: 2005Q2

REPORT INFORMATION
  Report Type: 
  Country: None (occurrence: None)
  Receive Date: 20050526
  Receipt Date: 20050526
  Transmission Date: 20051028
  Serious: Yes (Other)
  Sender: FDA-Public Use
  Company Number: None

PATIENT
  Age: 53 Year
  Sex: Male
  Weight: 87.0906 kg

DRUGS (3)
  1. CYMBALTA [Suspect]
     Indication: MULTIPLE SCLEROSIS
     Dosage: 60 MG ONE QD
     Dates: start: 20020101, end: 20050501
  2. CYMBALTA [Suspect]
     Indication: PAIN IN EXTREMITY
     Dosage: 60 MG ONE QD
     Dates: start: 20020101, end: 20050501
  3. KEPPRA [Concomitant]

REACTIONS (1)
  - TEMPERATURE INTOLERANCE [None]
